FAERS Safety Report 8191602-8 (Version None)
Quarter: 2012Q1

REPORT INFORMATION
  Report Type: 
  Country: None (occurrence: None)
  Receive Date: 20120307
  Receipt Date: 20120227
  Transmission Date: 20120608
  Serious: Yes (Hospitalization)
  Sender: FDA-Public Use
  Company Number: BR-ROCHE-784923

PATIENT
  Sex: Female
  Weight: 48.7 kg

DRUGS (5)
  1. METHOTREXATE [Concomitant]
  2. DEPURAN [Concomitant]
  3. DEFLANIL [Concomitant]
  4. NOVOFER [Concomitant]
  5. MABTHERA [Suspect]
     Indication: PRODUCT USED FOR UNKNOWN INDICATION
     Route: 065
     Dates: start: 20100801, end: 20120214

REACTIONS (11)
  - INFUSION RELATED REACTION [None]
  - ALLERGIC RESPIRATORY SYMPTOM [None]
  - SUFFOCATION FEELING [None]
  - ABDOMINAL DISTENSION [None]
  - CONTUSION [None]
  - EXCESSIVE GRANULATION TISSUE [None]
  - HYPERSENSITIVITY [None]
  - DYSPNOEA [None]
  - INFLAMMATION [None]
  - HYPERTENSION [None]
  - ILL-DEFINED DISORDER [None]
